FAERS Safety Report 20495849 (Version 3)
Quarter: 2022Q2

REPORT INFORMATION
  Report Type: Report from Study
  Country: EG (occurrence: EG)
  Receive Date: 20220221
  Receipt Date: 20220512
  Transmission Date: 20220721
  Serious: Yes (Other)
  Sender: FDA-Public Use
  Company Number: EG-NOVARTISPH-NVSC2022EG035685

PATIENT
  Age: 51 Year
  Sex: Female

DRUGS (9)
  1. KISQALI [Suspect]
     Active Substance: RIBOCICLIB
     Indication: Breast cancer metastatic
     Dosage: UNK (3 TABLETS OF KISQALI 200MG DAILY THE A WEAK OFF)
     Route: 065
  2. KISQALI [Suspect]
     Active Substance: RIBOCICLIB
     Dosage: UNK
     Route: 065
     Dates: start: 202109, end: 202202
  3. FEMARA [Suspect]
     Active Substance: LETROZOLE
     Indication: Product used for unknown indication
     Dosage: 1 DOSAGE FORM, QD
     Route: 065
     Dates: start: 202109, end: 202202
  4. ZOMETA [Suspect]
     Active Substance: ZOLEDRONIC ACID
     Indication: Product used for unknown indication
     Dosage: UNK (AMPOULES) ZOMETTA INJECTED EVERY 28 DAYS
     Route: 065
  5. CALCIUM CARBONATE\ERGOCALCIFEROL\RETINOL [Concomitant]
     Active Substance: CALCIUM CARBONATE\ERGOCALCIFEROL\RETINOL
     Indication: Bone disorder
     Dosage: UNK, BID
     Route: 065
     Dates: start: 20211006
  6. FILGRASTIM [Concomitant]
     Active Substance: FILGRASTIM
     Indication: Immune system disorder
     Dosage: UNK (2ND AND 3RD CHEMOTHERAPY
     Route: 065
  7. EMEND [Concomitant]
     Active Substance: APREPITANT
     Indication: Gastric disorder
     Dosage: 3 TABS ( ONE TABLET DAILY STARTING 3 DAYS BEFORE CHEMOTHERAPY)
     Route: 065
  8. PANTOPRAZOLE [Concomitant]
     Active Substance: PANTOPRAZOLE
     Indication: Gastric disorder
     Dosage: 1 DOSAGE FORM
     Route: 065
  9. ACETAMINOPHEN [Concomitant]
     Active Substance: ACETAMINOPHEN
     Indication: Gastric disorder
     Dosage: 1 DOSAGE FORM
     Route: 065

REACTIONS (19)
  - Metastases to liver [Not Recovered/Not Resolved]
  - Hepatic failure [Not Recovered/Not Resolved]
  - Disturbance in attention [Recovering/Resolving]
  - Fatigue [Recovering/Resolving]
  - Tremor [Recovering/Resolving]
  - Abdominal pain upper [Recovering/Resolving]
  - Hypoaesthesia [Unknown]
  - Pelvic pain [Unknown]
  - Arthralgia [Recovering/Resolving]
  - Bone pain [Recovering/Resolving]
  - Flushing [Recovering/Resolving]
  - Spinal pain [Recovering/Resolving]
  - Inflammation [Recovering/Resolving]
  - Pain [Recovering/Resolving]
  - Decreased appetite [Recovering/Resolving]
  - Dyspepsia [Recovering/Resolving]
  - Heart rate increased [Unknown]
  - Vomiting [Recovering/Resolving]
  - Asthenia [Recovering/Resolving]

NARRATIVE: CASE EVENT DATE: 20210901
